FAERS Safety Report 4666851-3 (Version None)
Quarter: 2005Q2

REPORT INFORMATION
  Report Type: 
  Country: None (occurrence: None)
  Receive Date: 20050518
  Receipt Date: 20041117
  Transmission Date: 20051028
  Serious: Yes (Other)
  Sender: FDA-Public Use
  Company Number: 2004122158

PATIENT
  Age: 40 Year
  Sex: Female
  Weight: 56.6996 kg

DRUGS (5)
  1. DEPO-PROVERA [Suspect]
     Indication: OVARIAN CYST
     Dosage: UNK (150MG EVERY 3 MONTHS,1ST INJECTION) IM,(150MG, SECOND INJ)IM,(150MG,LAST INJ),IM
     Route: 030
     Dates: start: 20040701, end: 20040701
  2. DEPO-PROVERA [Suspect]
     Indication: OVARIAN CYST
     Dosage: UNK (150MG EVERY 3 MONTHS,1ST INJECTION) IM,(150MG, SECOND INJ)IM,(150MG,LAST INJ),IM
     Route: 030
     Dates: start: 20040901, end: 20040901
  3. DEPO-PROVERA [Suspect]
     Indication: OVARIAN CYST
     Dosage: UNK (150MG EVERY 3 MONTHS,1ST INJECTION) IM,(150MG, SECOND INJ)IM,(150MG,LAST INJ),IM
     Route: 030
     Dates: start: 20041213, end: 20041213
  4. TOTOLIN (GUAIFENESIN, PHENYLPROPANOLAMINE HYDROCHLORIDE) [Concomitant]
  5. TOPIRAMATE [Concomitant]

REACTIONS (1)
  - ALOPECIA [None]
